FAERS Safety Report 11119362 (Version 1)
Quarter: 2015Q2

REPORT INFORMATION
  Report Type: Spontaneous
  Country: US (occurrence: US)
  Receive Date: 20150518
  Receipt Date: 20150518
  Transmission Date: 20150821
  Serious: No
  Sender: FDA-Public Use
  Company Number: US-ELI_LILLY_AND_COMPANY-US201504007373

PATIENT
  Age: 9 Year
  Sex: Male

DRUGS (5)
  1. STRATTERA [Suspect]
     Active Substance: ATOMOXETINE HYDROCHLORIDE
     Indication: ATTENTION DEFICIT/HYPERACTIVITY DISORDER
     Dosage: 10 MG, QD
     Route: 048
     Dates: start: 201403, end: 2014
  2. PROAIR HFA [Concomitant]
     Active Substance: ALBUTEROL SULFATE
  3. STRATTERA [Suspect]
     Active Substance: ATOMOXETINE HYDROCHLORIDE
     Dosage: 10 MG, QD
     Route: 048
     Dates: start: 201408, end: 20150407
  4. SINGULAIR [Concomitant]
     Active Substance: MONTELUKAST SODIUM
  5. STRATTERA [Suspect]
     Active Substance: ATOMOXETINE HYDROCHLORIDE
     Dosage: 25 MG, QD
     Route: 048
     Dates: start: 20150408

REACTIONS (5)
  - Fatigue [Unknown]
  - Underdose [Unknown]
  - Drug ineffective [Unknown]
  - Wrong technique in drug usage process [Unknown]
  - Abnormal behaviour [Unknown]
